FAERS Safety Report 12651427 (Version 3)
Quarter: 2016Q3

REPORT INFORMATION
  Report Type: Spontaneous
  Country: JP (occurrence: JP)
  Receive Date: 20160815
  Receipt Date: 20160909
  Transmission Date: 20161109
  Serious: Yes (Hospitalization)
  Sender: FDA-Public Use
  Company Number: JP-SA-2016SA144125

PATIENT
  Age: 62 Year
  Sex: Female
  Weight: 47.6 kg

DRUGS (3)
  1. ARAVA [Suspect]
     Active Substance: LEFLUNOMIDE
     Indication: RHEUMATOID ARTHRITIS
     Route: 048
     Dates: start: 20160512, end: 20160623
  2. CALONAL [Concomitant]
     Active Substance: ACETAMINOPHEN
     Indication: RHEUMATOID ARTHRITIS
     Route: 048
     Dates: start: 20160407, end: 20160623
  3. TALION [Concomitant]
     Active Substance: BEPOTASTINE
     Indication: DRUG ERUPTION
     Route: 048
     Dates: start: 20160509, end: 20160630

REACTIONS (1)
  - Myositis [Recovered/Resolved]
